FAERS Safety Report 9640456 (Version 1)
Quarter: 2013Q4

REPORT INFORMATION
  Report Type: Spontaneous
  Country: US (occurrence: None)
  Receive Date: 20131022
  Receipt Date: 20131022
  Transmission Date: 20140711
  Serious: Yes (Other)
  Sender: FDA-Public Use
  Company Number: None

PATIENT
  Age: 60 Year
  Sex: Female
  Weight: 58.06 kg

DRUGS (5)
  1. CLOBETASOL PROPIONATE [Suspect]
     Indication: ORAL LICHEN PLANUS
     Dosage: 60 GRAMS; APPLY TO AFFECTED AREAS
     Dates: start: 20130905, end: 20131008
  2. LISINOPRIL [Concomitant]
  3. CELEXA [Concomitant]
  4. TOPROL XL [Concomitant]
  5. BYSTOLIC [Concomitant]

REACTIONS (4)
  - Rash pruritic [None]
  - Rash erythematous [None]
  - Rash [None]
  - Burning sensation [None]
